FAERS Safety Report 25096883 (Version 1)
Quarter: 2025Q1

REPORT INFORMATION
  Report Type: Spontaneous
  Country: IT (occurrence: IT)
  Receive Date: 20250319
  Receipt Date: 20250319
  Transmission Date: 20250409
  Serious: Yes (Other)
  Sender: NOVA LABORATORIES LIMITED
  Company Number: IT-Nova Laboratories Limited-2173225

PATIENT
  Age: 46 Year
  Sex: Male

DRUGS (3)
  1. PURIXAN [Suspect]
     Active Substance: MERCAPTOPURINE
     Indication: Acute promyelocytic leukaemia
     Dates: start: 202203
  2. METHOTREXATE [Suspect]
     Active Substance: METHOTREXATE
  3. TRETINOIN [Suspect]
     Active Substance: TRETINOIN
     Dates: start: 202203

REACTIONS (2)
  - Leukaemia recurrent [Unknown]
  - Off label use [Unknown]

NARRATIVE: CASE EVENT DATE: 20220101
